FAERS Safety Report 9735614 (Version 5)
Quarter: 2014Q2

REPORT INFORMATION
  Report Type: Spontaneous
  Country: BR (occurrence: BR)
  Receive Date: 20131206
  Receipt Date: 20140508
  Transmission Date: 20141212
  Serious: Yes (Other)
  Sender: FDA-Public Use
  Company Number: PHHY2013BR142642

PATIENT
  Age: 47 Year
  Sex: Female
  Weight: 58 kg

DRUGS (2)
  1. TRILEPTAL [Suspect]
     Indication: CONVULSION
     Dosage: 4 DF (300 MG), DAILY
     Route: 048
  2. TRILEPTAL [Suspect]
     Indication: HIPPOCAMPAL SCLEROSIS

REACTIONS (5)
  - Petit mal epilepsy [Not Recovered/Not Resolved]
  - Hippocampal sclerosis [Recovering/Resolving]
  - Convulsion [Recovered/Resolved]
  - Dysgeusia [Recovered/Resolved]
  - Headache [Recovered/Resolved]
